FAERS Safety Report 22138148 (Version 1)
Quarter: 2023Q1

REPORT INFORMATION
  Report Type: Report from Study
  Country: IN (occurrence: IN)
  Receive Date: 20230325
  Receipt Date: 20230325
  Transmission Date: 20230417
  Serious: Yes (Hospitalization, Other)
  Sender: FDA-Public Use
  Company Number: IN-002147023-NVSC2023IN065581

PATIENT
  Age: 49 Year
  Sex: Female
  Weight: 57 kg

DRUGS (3)
  1. SIMULECT [Suspect]
     Active Substance: BASILIXIMAB
     Indication: Renal transplant
     Dosage: 20 MG, BID (INJECTION)
     Route: 042
     Dates: start: 20230208, end: 20230208
  2. TRIAMCINOLONE ACETONIDE [Concomitant]
     Active Substance: TRIAMCINOLONE ACETONIDE
     Indication: Product used for unknown indication
     Dosage: UNK
     Route: 065
  3. MYCOPHENOLATE MOFETIL [Concomitant]
     Active Substance: MYCOPHENOLATE MOFETIL
     Indication: Product used for unknown indication
     Dosage: UNK
     Route: 065

REACTIONS (11)
  - Kidney transplant rejection [Not Recovered/Not Resolved]
  - Complications of transplanted kidney [Unknown]
  - Renal tubular necrosis [Unknown]
  - Renal tubular injury [Unknown]
  - Chronic allograft nephropathy [Unknown]
  - Oedema [Unknown]
  - Lymphocytic infiltration [Unknown]
  - Inflammation [Unknown]
  - Focal segmental glomerulosclerosis [Unknown]
  - Urine output decreased [Unknown]
  - Blood creatinine increased [Not Recovered/Not Resolved]

NARRATIVE: CASE EVENT DATE: 20230201
